FAERS Safety Report 9726747 (Version 1)
Quarter: 2013Q4

REPORT INFORMATION
  Report Type: Spontaneous
  Country: CO (occurrence: None)
  Receive Date: 20131129
  Receipt Date: 20131129
  Transmission Date: 20140711
  Serious: Yes (Other)
  Sender: FDA-Public Use
  Company Number: 2013335652

PATIENT
  Age: 16 Year
  Sex: Male

DRUGS (1)
  1. FRAGMIN [Suspect]

REACTIONS (1)
  - Femur fracture [None]
